FAERS Safety Report 6434931-8 (Version None)
Quarter: 2009Q4

REPORT INFORMATION
  Report Type: 
  Country: None (occurrence: None)
  Receive Date: 20091109
  Receipt Date: 20091109
  Transmission Date: 20100525
  Serious: Yes (Life-Threatening)
  Sender: FDA-Public Use
  Company Number: None

PATIENT
  Sex: Male
  Weight: 102.5 kg

DRUGS (5)
  1. XOLAIR [Suspect]
     Indication: ASTHMA
     Dosage: 375 MG EVERY 2 WEEKS SUBCUTANEOUS
     Route: 058
     Dates: start: 20080125, end: 20091023
  2. ADVAIR DISKUS 100/50 [Concomitant]
  3. ALBUTEROL [Concomitant]
  4. NASONEX [Concomitant]
  5. TRICHOR/ZOCOR [Concomitant]

REACTIONS (2)
  - THROAT TIGHTNESS [None]
  - TONGUE OEDEMA [None]
